FAERS Safety Report 9277625 (Version 4)
Quarter: 2013Q3

REPORT INFORMATION
  Report Type: Report from Study
  Country: CA (occurrence: CA)
  Receive Date: 20130508
  Receipt Date: 20130717
  Transmission Date: 20140515
  Serious: Yes (Other)
  Sender: FDA-Public Use
  Company Number: PHHY2013CA038330

PATIENT
  Age: 26 Year
  Sex: Female

DRUGS (5)
  1. GILENYA [Suspect]
     Indication: RELAPSING-REMITTING MULTIPLE SCLEROSIS
     Dosage: 0.5 MG, DAILY
     Route: 048
     Dates: start: 20120130
  2. VITAMIN D [Concomitant]
  3. METHYLPHENIDATE [Concomitant]
  4. CONTRACEPTIVES [Concomitant]
  5. B12-VITAMIN [Concomitant]

REACTIONS (10)
  - Vulvovaginal human papilloma virus infection [Recovered/Resolved]
  - Skin candida [Unknown]
  - Rash pruritic [Recovering/Resolving]
  - Pruritus [Unknown]
  - Vulvovaginal candidiasis [Unknown]
  - Vulvovaginal discomfort [Unknown]
  - Vaginal lesion [Recovered/Resolved]
  - Pneumonia [Recovering/Resolving]
  - Arthralgia [Unknown]
  - Musculoskeletal stiffness [Unknown]
